FAERS Safety Report 4645472-2 (Version None)
Quarter: 2005Q2

REPORT INFORMATION
  Report Type: 
  Country: None (occurrence: None)
  Receive Date: 20050426
  Receipt Date: 20050419
  Transmission Date: 20051028
  Serious: Yes (Death)
  Sender: FDA-Public Use
  Company Number: GB-MERCK-0504GBR00112

PATIENT
  Sex: Male

DRUGS (2)
  1. COZAAR [Suspect]
     Indication: HYPERTENSION
     Route: 048
     Dates: start: 20050401, end: 20050401
  2. NIFEDIPINE [Concomitant]
     Route: 065

REACTIONS (7)
  - CHEST DISCOMFORT [None]
  - COUGH [None]
  - GINGIVAL PAIN [None]
  - ORAL PAIN [None]
  - SWOLLEN TONGUE [None]
  - THROAT TIGHTNESS [None]
  - TOOTHACHE [None]
